FAERS Safety Report 7684877-2 (Version None)
Quarter: 2011Q3

REPORT INFORMATION
  Report Type: 
  Country: None (occurrence: None)
  Receive Date: 20110711
  Receipt Date: 20110506
  Transmission Date: 20111222
  Serious: Yes (Other)
  Sender: FDA-Public Use
  Company Number: IPC201105-001503

PATIENT

DRUGS (4)
  1. METOCLOPRAMIDE [Suspect]
     Dosage: ORAL
     Route: 048
     Dates: start: 20011001, end: 20091101
  2. REGLAN [Suspect]
     Dosage: ORAL
     Route: 048
     Dates: start: 20011001, end: 20091101
  3. METOCLOPRAMIDE HYDROCHLORIDE [Suspect]
     Dosage: ORAL
     Route: 048
     Dates: start: 20011001, end: 20091101
  4. METOCLOPRAMIDE HYDROCHLORIDE [Suspect]
     Dosage: ORAL
     Route: 048
     Dates: start: 20011001, end: 20091101

REACTIONS (1)
  - TARDIVE DYSKINESIA [None]
